FAERS Safety Report 12921497 (Version 3)
Quarter: 2016Q4

REPORT INFORMATION
  Report Type: Spontaneous
  Country: RO (occurrence: RO)
  Receive Date: 20161108
  Receipt Date: 20161123
  Transmission Date: 20170207
  Serious: Yes (Hospitalization)
  Sender: FDA-Public Use
  Company Number: RO-GE HEALTHCARE MEDICAL DIAGNOSTICS-OMPQ-PR-1611S-2061

PATIENT
  Age: 62 Year
  Sex: Female

DRUGS (5)
  1. NO-SPA [Concomitant]
     Active Substance: DROTAVERINE HYDROCHLORIDE
     Indication: NEPHROLITHIASIS
  2. ALGOCALMIN [Concomitant]
     Active Substance: METAMIZOLE SODIUM
     Indication: NEPHROLITHIASIS
  3. OMNIPAQUE [Suspect]
     Active Substance: IOHEXOL
     Indication: DIAGNOSTIC PROCEDURE
  4. OMNIPAQUE [Suspect]
     Active Substance: IOHEXOL
     Indication: NEPHROLITHIASIS
     Route: 042
     Dates: start: 20161028, end: 20161028
  5. PIAFEN [Concomitant]
     Indication: NEPHROLITHIASIS

REACTIONS (4)
  - Sensation of foreign body [Recovered/Resolved]
  - Vertigo [Recovered/Resolved]
  - Erythema [Recovered/Resolved]
  - Dry mouth [Recovered/Resolved]

NARRATIVE: CASE EVENT DATE: 20161028
